FAERS Safety Report 16192390 (Version 1)
Quarter: 2019Q2

REPORT INFORMATION
  Report Type: Spontaneous
  Country: US (occurrence: US)
  Receive Date: 20190412
  Receipt Date: 20190412
  Transmission Date: 20190711
  Serious: No
  Sender: FDA-Public Use
  Company Number: US-SA-2019SA099092

PATIENT
  Age: 60 Year
  Sex: Female

DRUGS (12)
  1. AMLODIPINE [Concomitant]
     Active Substance: AMLODIPINE BESYLATE
     Dosage: UNK
  2. DOXYCYCLINE. [Concomitant]
     Active Substance: DOXYCYCLINE
     Dosage: UNK
  3. AUBAGIO [Suspect]
     Active Substance: TERIFLUNOMIDE
     Dosage: 14 MG, QD
     Route: 048
     Dates: start: 20180312
  4. BACLOFEN. [Concomitant]
     Active Substance: BACLOFEN
     Dosage: UNK
  5. VITAMIN E FORTE [Concomitant]
     Dosage: 30000UNIT/6
  6. CALCIUM [Concomitant]
     Active Substance: CALCIUM
     Dosage: UNK
  7. MULTIVITAMIN [VITAMINS NOS] [Concomitant]
  8. OXCARBAZEPIN [Concomitant]
     Active Substance: OXCARBAZEPINE
     Dosage: UNK
  9. SPIRONOLACTON [Concomitant]
     Active Substance: SPIRONOLACTONE
     Dosage: UNK
  10. MELOXICAM. [Concomitant]
     Active Substance: MELOXICAM
     Dosage: UNK
  11. GABAPENTIN. [Concomitant]
     Active Substance: GABAPENTIN
     Dosage: UNK
  12. COENZYME Q10 [Concomitant]
     Active Substance: UBIDECARENONE
     Dosage: UNK

REACTIONS (1)
  - Product dose omission [Not Recovered/Not Resolved]
